FAERS Safety Report 4394211-1 (Version None)
Quarter: 2004Q3

REPORT INFORMATION
  Report Type: 
  Country: None (occurrence: None)
  Receive Date: 20040712
  Receipt Date: 20030908
  Transmission Date: 20050211
  Serious: Yes (Death, Other)
  Sender: FDA-Public Use
  Company Number: PHBS2003JP09720

PATIENT
  Age: 60 Year
  Sex: Male

DRUGS (2)
  1. GLEEVEC [Suspect]
     Indication: BLAST CRISIS IN MYELOGENOUS LEUKAEMIA
     Dosage: 400 MG/DAY
     Route: 048
     Dates: start: 20030710, end: 20030101
  2. GLEEVEC [Suspect]
     Dosage: 600 MG/DAY
     Route: 048
     Dates: start: 20030101, end: 20030820

REACTIONS (4)
  - ASTHENIA [None]
  - BLAST CRISIS IN MYELOGENOUS LEUKAEMIA [None]
  - INTERSTITIAL LUNG DISEASE [None]
  - SPLENOMEGALY [None]
